FAERS Safety Report 23544871 (Version 1)
Quarter: 2024Q1

REPORT INFORMATION
  Report Type: Spontaneous
  Country: US (occurrence: None)
  Receive Date: 20240219
  Receipt Date: 20240219
  Transmission Date: 20240409
  Serious: Yes (Hospitalization)
  Sender: FDA-Public Use
  Company Number: None

PATIENT
  Sex: Female

DRUGS (4)
  1. DROXIDOPA [Suspect]
     Active Substance: DROXIDOPA
     Indication: Complement deficiency disease
     Dosage: FREQUENCY : DAILY;?
     Route: 048
     Dates: start: 202208
  2. DROXIDOPA [Concomitant]
     Active Substance: DROXIDOPA
  3. BERINERT KIT [Concomitant]
  4. TAKHZYRO PFS [Concomitant]

REACTIONS (1)
  - Pharyngeal swelling [None]
